FAERS Safety Report 21502777 (Version 1)
Quarter: 2022Q4

REPORT INFORMATION
  Report Type: Spontaneous
  Country: US (occurrence: US)
  Receive Date: 20221025
  Receipt Date: 20221025
  Transmission Date: 20230113
  Serious: Yes (Disabling)
  Sender: FDA-Public Use
  Company Number: US-Merz Pharmaceuticals GmbH-22-03117

PATIENT
  Sex: Female

DRUGS (1)
  1. XEOMIN [Suspect]
     Active Substance: INCOBOTULINUMTOXINA
     Indication: Skin wrinkling
     Dates: start: 20210821, end: 20210821

REACTIONS (2)
  - Injection site indentation [Not Recovered/Not Resolved]
  - Injection site erythema [Not Recovered/Not Resolved]
